FAERS Safety Report 17222112 (Version 1)
Quarter: 2019Q4

REPORT INFORMATION
  Report Type: Spontaneous
  Country: US (occurrence: US)
  Receive Date: 20191209
  Receipt Date: 20191209
  Transmission Date: 20200122
  Serious: No
  Sender: FDA-Public Use
  Company Number: None

PATIENT
  Age: 67 Year
  Sex: Female

DRUGS (1)
  1. OMPERAZOLE DR CAPS - 20MG [Suspect]
     Active Substance: OMEPRAZOLE
     Indication: GASTROOESOPHAGEAL REFLUX DISEASE
     Dosage: TAKE :ONE CAPSULE DAILY;OTHER FREQUENCY:PRN/ AS NEEDED; ORAL?
     Route: 048

REACTIONS (2)
  - Therapeutic product effect incomplete [None]
  - Nausea [None]

NARRATIVE: CASE EVENT DATE: 20191118
